FAERS Safety Report 21612079 (Version 2)
Quarter: 2022Q4

REPORT INFORMATION
  Report Type: Other
  Country: US (occurrence: None)
  Receive Date: 20221118
  Receipt Date: 20221214
  Transmission Date: 20230112
  Serious: Yes (Hospitalization, Other)
  Sender: FDA-Public Use
  Company Number: US-ROCHE-2262665

PATIENT
  Age: 50 Year
  Sex: Male
  Weight: 149.82 kg

DRUGS (8)
  1. OCREVUS [Suspect]
     Active Substance: OCRELIZUMAB
     Indication: Relapsing-remitting multiple sclerosis
     Dosage: YES, INFUSE 300MG DAY 1 + DAY 15, THEN INFUSE 600 MG EVERY 6 MONTHS
     Route: 042
     Dates: start: 201703
  2. AMITRIPTYLINE [Concomitant]
     Active Substance: AMITRIPTYLINE
  3. NUEDEXTA [Concomitant]
     Active Substance: DEXTROMETHORPHAN HYDROBROMIDE\QUINIDINE SULFATE
  4. VIIBRYD [Concomitant]
     Active Substance: VILAZODONE HYDROCHLORIDE
  5. BACLOFEN [Concomitant]
     Active Substance: BACLOFEN
  6. ADDERALL [Concomitant]
     Active Substance: AMPHETAMINE ASPARTATE\AMPHETAMINE SULFATE\DEXTROAMPHETAMINE SACCHARATE\DEXTROAMPHETAMINE SULFATE
  7. IBUPROFEN [Concomitant]
     Active Substance: IBUPROFEN
  8. OXYCODONE [Concomitant]
     Active Substance: OXYCODONE

REACTIONS (6)
  - Colon cancer [Recovered/Resolved]
  - Sepsis [Recovered/Resolved]
  - Arthritis bacterial [Recovering/Resolving]
  - Affect lability [Recovering/Resolving]
  - Beta haemolytic streptococcal infection [Unknown]
  - COVID-19 [Recovered/Resolved]

NARRATIVE: CASE EVENT DATE: 20181218
